FAERS Safety Report 24302301 (Version 1)
Quarter: 2024Q3

REPORT INFORMATION
  Report Type: Report from Study
  Country: US (occurrence: US)
  Receive Date: 20240910
  Receipt Date: 20240910
  Transmission Date: 20241017
  Serious: Yes (Hospitalization, Other)
  Sender: GILEAD
  Company Number: US-GILEAD-2024-0686714

PATIENT
  Sex: Female

DRUGS (1)
  1. AZTREONAM LYSINE [Suspect]
     Active Substance: AZTREONAM LYSINE
     Indication: Cystic fibrosis
     Dosage: 1 DOSAGE FORM, TID (INHALE THE CONTENTS OF 1 VIAL VIA NEBULIZER FOR 28 DAYS ON, 28 DAYS OFF)
     Route: 055
     Dates: start: 20220505

REACTIONS (3)
  - Pseudomonas infection [Unknown]
  - Lung disorder [Unknown]
  - Dyspnoea [Unknown]
